FAERS Safety Report 18261572 (Version 1)
Quarter: 2020Q3

REPORT INFORMATION
  Report Type: Spontaneous
  Country: US (occurrence: US)
  Receive Date: 20200911
  Receipt Date: 20200911
  Transmission Date: 20201103
  Serious: Yes (Other)
  Sender: FDA-Public Use
  Company Number: None

PATIENT
  Age: 52 Year
  Sex: Female
  Weight: 77.85 kg

DRUGS (3)
  1. OXYCODONE [Concomitant]
     Active Substance: OXYCODONE
  2. FONDAPARINUX [Suspect]
     Active Substance: FONDAPARINUX
     Indication: EMBOLISM
     Route: 058
     Dates: start: 20171010
  3. NEURONTIN [Concomitant]
     Active Substance: GABAPENTIN

REACTIONS (1)
  - Cough [None]

NARRATIVE: CASE EVENT DATE: 20200911
